FAERS Safety Report 4808204-0 (Version None)
Quarter: 2005Q4

REPORT INFORMATION
  Report Type: 
  Country: None (occurrence: None)
  Receive Date: 20051021
  Receipt Date: 20051006
  Transmission Date: 20060501
  Serious: Yes (Other)
  Sender: FDA-Public Use
  Company Number: T05-AUT-03797-01

PATIENT
  Age: 94 Year
  Sex: Male

DRUGS (6)
  1. AXURA (MEMANTINE HYDROCHLORIDE) [Suspect]
     Indication: DEMENTIA ALZHEIMER'S TYPE
     Dosage: 10 MG QD PO
     Route: 048
     Dates: start: 20050414, end: 20050929
  2. MADOPAR [Concomitant]
  3. ACEMIN (LISINOPRIL) [Concomitant]
  4. FAMOTIDINE [Concomitant]
  5. EFFECTIN (VENLAFAXINE HYDROCHLORIDE) [Concomitant]
  6. SEROQUEL [Concomitant]

REACTIONS (2)
  - AGITATION [None]
  - SCREAMING [None]
